FAERS Safety Report 7041307-1 (Version None)
Quarter: 2010Q4

REPORT INFORMATION
  Report Type: 
  Country: None (occurrence: None)
  Receive Date: 20101013
  Receipt Date: 20101004
  Transmission Date: 20110411
  Serious: Yes (Hospitalization)
  Sender: FDA-Public Use
  Company Number: US-US-EMD SERONO, INC.-7020430

PATIENT
  Sex: Female

DRUGS (3)
  1. REBIF [Suspect]
     Indication: MULTIPLE SCLEROSIS
     Route: 058
     Dates: start: 20050513
  2. INSULIN [Concomitant]
     Indication: DIABETES MELLITUS
     Dates: start: 19920101
  3. SUGAR PILL [Concomitant]
     Indication: DIABETES MELLITUS

REACTIONS (2)
  - BLOOD GLUCOSE ABNORMAL [None]
  - MULTIPLE SCLEROSIS RELAPSE [None]
